FAERS Safety Report 6497001-9 (Version None)
Quarter: 2009Q4

REPORT INFORMATION
  Report Type: 
  Country: None (occurrence: None)
  Receive Date: 20091215
  Receipt Date: 20081215
  Transmission Date: 20100525
  Serious: No
  Sender: FDA-Public Use
  Company Number: A0760461A

PATIENT
  Age: 83 Year
  Sex: Male

DRUGS (9)
  1. AVODART [Suspect]
     Indication: BENIGN PROSTATIC HYPERPLASIA
     Dosage: .5MG PER DAY
     Route: 048
     Dates: start: 20080901
  2. MULTI-VITAMIN [Concomitant]
  3. LISINOPRIL [Concomitant]
  4. HYDROCHLOROTHIAZIDE [Concomitant]
  5. PHENAZOPYRIDIN [Concomitant]
  6. HIBIMAX [Concomitant]
  7. CHOLESTABYL [Concomitant]
  8. THORAZINE [Concomitant]
  9. FISH OIL [Concomitant]

REACTIONS (1)
  - MUSCLE SPASMS [None]
